FAERS Safety Report 16624048 (Version 19)
Quarter: 2020Q1

REPORT INFORMATION
  Report Type: Report from Study
  Country: None (occurrence: IL)
  Receive Date: 20190724
  Receipt Date: 20200330
  Transmission Date: 20200409
  Serious: Yes (Hospitalization)
  Sender: FDA-Public Use
  Company Number: IL-ABBVIE-19K-082-2864188-00

PATIENT
  Age: 84 Year
  Sex: Male

DRUGS (15)
  1. DUODOPA [Suspect]
     Active Substance: CARBIDOPA\LEVODOPA
     Dosage: CURRENT MORNING 1.5 ML, CONTINUOUS RATE 3.4 ML/HOUR, NIGHT 2.1 ML, ED 1.5 ML
     Route: 050
  2. DUODOPA [Suspect]
     Active Substance: CARBIDOPA\LEVODOPA
     Dosage: M 5.0 ML, CRD DAY 4.0 ML/HOUR, EDD 2.0 ML, CRN 3.0 ML/HOUR, EDN 0.8 ML
     Route: 050
  3. DUODOPA [Suspect]
     Active Substance: CARBIDOPA\LEVODOPA
     Dosage: CMD- 5ML, CFR-4 ML/ HOUR, CED-1.5 ML/ CND- 5ML
     Route: 050
  4. DUODOPA [Suspect]
     Active Substance: CARBIDOPA\LEVODOPA
     Indication: PARKINSON^S DISEASE
     Dosage: CURRENT MD: 3.0 ML, CR: 4.2 ML/ HOUR, CND: 2.5 ML, CED 1.0 ML
     Route: 050
     Dates: start: 20170228
  5. AMANTADINE. [Suspect]
     Active Substance: AMANTADINE HYDROCHLORIDE
     Dosage: DOSE DECREASED
     Route: 065
  6. DUODOPA [Suspect]
     Active Substance: CARBIDOPA\LEVODOPA
     Dosage: MD 4.0ML, CD 4.5ML/HOUR, ED 1.0ML NCD 3.0ML/HOUR
     Route: 050
  7. DUODOPA [Suspect]
     Active Substance: CARBIDOPA\LEVODOPA
     Dosage: MD 1.5ML, CD DOSE 3.4ML/HOUR, CONTINUOUS NIGHT DOSE 2.1ML/HOUR, ED 0.8ML
     Route: 050
  8. DUODOPA [Suspect]
     Active Substance: CARBIDOPA\LEVODOPA
     Dosage: MORNING DOSE 5ML,?DAY CD 4.2ML/HOUR INCREASED TO 4.7ML/HOUR,?NIGHT CD 3.0ML/HOUR,?ED 3.0ML
     Route: 050
  9. DUODOPA [Suspect]
     Active Substance: CARBIDOPA\LEVODOPA
     Dosage: MD- 1.5 ML, CR- 4.2 ML/ HOUR, CRD- 2.5 ML?CED- 0.8 ML
     Route: 050
  10. DUODOPA [Suspect]
     Active Substance: CARBIDOPA\LEVODOPA
     Dosage: MD 4.0 ML, CR 4.5 ML/HOUR, CND 3.30 ML/HOUR, EXTRA DOSE 1.5 ML.
     Route: 050
  11. DUODOPA [Suspect]
     Active Substance: CARBIDOPA\LEVODOPA
     Dosage: CURRENT MD- 5 ML, CR- 4 ML/ HOUR,?CURRENT ND- 3 ML?CURRENT ED- 1.5 ML
     Route: 050
  12. AMANTADINE. [Suspect]
     Active Substance: AMANTADINE HYDROCHLORIDE
     Indication: PRODUCT USED FOR UNKNOWN INDICATION
     Route: 065
  13. DUODOPA [Suspect]
     Active Substance: CARBIDOPA\LEVODOPA
     Dosage: CURRENT:?MD 5ML,?CDD 4.2ML/HOUR,?CONTINUOUS NIGHT DOSE 3ML/HOUR,?EXTRA DOSE 3ML
     Route: 050
  14. DUODOPA [Suspect]
     Active Substance: CARBIDOPA\LEVODOPA
     Dosage: CURRENT MD- 5 ML, C R- 4.2 ML/ HOUR,?CURRENT ND- 3 ML?CURRENT E D- 3 ML
     Route: 050
  15. DOPICAR [Concomitant]
     Active Substance: CARBIDOPA\LEVODOPA
     Indication: MUSCULOSKELETAL PAIN
     Dosage: ABOUT 4 HALF TABLET PER DAY.

REACTIONS (22)
  - Dyspnoea [Recovered/Resolved]
  - Medical device site nodule [Recovered/Resolved]
  - Musculoskeletal pain [Not Recovered/Not Resolved]
  - Dysphagia [Unknown]
  - Stoma site oedema [Unknown]
  - Mastication disorder [Unknown]
  - Stoma site erythema [Recovered/Resolved]
  - Stoma site pain [Recovered/Resolved]
  - On and off phenomenon [Unknown]
  - Weight decreased [Unknown]
  - On and off phenomenon [Recovered/Resolved]
  - On and off phenomenon [Unknown]
  - Balance disorder [Unknown]
  - Tooth disorder [Unknown]
  - Arthralgia [Unknown]
  - Nocturnal dyspnoea [Unknown]
  - Food intolerance [Recovering/Resolving]
  - Pain in extremity [Unknown]
  - Stoma site discharge [Recovering/Resolving]
  - Pain [Unknown]
  - General physical health deterioration [Unknown]
  - Device use issue [Unknown]

NARRATIVE: CASE EVENT DATE: 2019
